FAERS Safety Report 8352039-1 (Version None)
Quarter: 2012Q2

REPORT INFORMATION
  Report Type: 
  Country: None (occurrence: None)
  Receive Date: 20120509
  Receipt Date: 20120430
  Transmission Date: 20120825
  Serious: Yes (Hospitalization)
  Sender: FDA-Public Use
  Company Number: IMP_05872_2012

PATIENT
  Age: 49 Year
  Sex: Female

DRUGS (6)
  1. PROCHLORPERAZINE [Concomitant]
  2. LOSARTAN POTASSIUM [Concomitant]
  3. METFORMIN HCL [Suspect]
     Indication: TYPE 2 DIABETES MELLITUS
     Dosage: (DF)
  4. NSAID'S [Concomitant]
  5. ATENOLOL [Concomitant]
  6. BENDROFLUMETHIAZIDE [Concomitant]

REACTIONS (12)
  - VOMITING [None]
  - PULMONARY OEDEMA [None]
  - DIARRHOEA [None]
  - NAUSEA [None]
  - HAEMODIALYSIS [None]
  - DEHYDRATION [None]
  - LACTIC ACIDOSIS [None]
  - HYPOXIA [None]
  - RENAL FAILURE ACUTE [None]
  - ABDOMINAL PAIN LOWER [None]
  - HYPOTENSION [None]
  - ANION GAP INCREASED [None]
